FAERS Safety Report 9458245 (Version 1)
Quarter: 2013Q3

REPORT INFORMATION
  Report Type: Spontaneous
  Country: US (occurrence: None)
  Receive Date: 20130812
  Receipt Date: 20130812
  Transmission Date: 20140515
  Serious: Yes (Hospitalization, Other)
  Sender: FDA-Public Use
  Company Number: 2013-328

PATIENT
  Age: 42 Year
  Sex: Male

DRUGS (1)
  1. PRIALT (ZICONOTIDE) INTRATHECAL INFUSION [Suspect]
     Indication: COMPLEX REGIONAL PAIN SYNDROME
     Route: 037

REACTIONS (17)
  - Lung infection [None]
  - Leukocytosis [None]
  - Respiratory acidosis [None]
  - Obstructive airways disorder [None]
  - Unresponsive to stimuli [None]
  - Headache [None]
  - Lethargy [None]
  - Somnolence [None]
  - Vomiting [None]
  - Arthralgia [None]
  - Muscular weakness [None]
  - Toxicity to various agents [None]
  - Chest discomfort [None]
  - Chest discomfort [None]
  - Depressed level of consciousness [None]
  - Sick sinus syndrome [None]
  - Sinus tachycardia [None]
